FAERS Safety Report 14784433 (Version 2)
Quarter: 2018Q2

REPORT INFORMATION
  Report Type: Spontaneous
  Country: ES (occurrence: ES)
  Receive Date: 20180420
  Receipt Date: 20180420
  Transmission Date: 20180711
  Serious: Yes (Death, Hospitalization)
  Sender: FDA-Public Use
  Company Number: PHHY2018ES069216

PATIENT
  Age: 40 Year
  Sex: Male
  Weight: 140 kg

DRUGS (2)
  1. PREDNISOLONE. [Suspect]
     Active Substance: PREDNISOLONE
     Dosage: 300 MG, TOTAL
     Route: 048
     Dates: start: 20171110
  2. PREDNISOLONE. [Suspect]
     Active Substance: PREDNISOLONE
     Indication: SELF-MEDICATION
     Dosage: 60 MG, QD
     Route: 048
     Dates: start: 2007

REACTIONS (2)
  - Cardiogenic shock [Fatal]
  - Myocarditis [Fatal]

NARRATIVE: CASE EVENT DATE: 20171112
